FAERS Safety Report 9783369 (Version 1)
Quarter: 2013Q4

REPORT INFORMATION
  Report Type: Spontaneous
  Country: US (occurrence: US)
  Receive Date: 20131226
  Receipt Date: 20131226
  Transmission Date: 20140711
  Serious: Yes (Hospitalization, Other)
  Sender: FDA-Public Use
  Company Number: US-BAYER-2013-156702

PATIENT
  Age: 34 Year
  Sex: Female
  Weight: 108.39 kg

DRUGS (15)
  1. YASMIN [Suspect]
  2. HYZAAR [Concomitant]
  3. ATENOLOL [Concomitant]
  4. ACIPHEX [Concomitant]
  5. ALAVERT [Concomitant]
  6. TENORMIN [Concomitant]
  7. BENADRYL [Concomitant]
  8. NIFEDIPINE [Concomitant]
  9. PERSANTINE [Concomitant]
  10. VICODIN [Concomitant]
  11. REQUIP [Concomitant]
  12. LIPITOR [Concomitant]
  13. NEURONTIN [Concomitant]
  14. BETA BLOCKING AGENTS [Concomitant]
  15. XANAX [Concomitant]

REACTIONS (5)
  - Cholelithiasis [None]
  - Renal artery thrombosis [None]
  - Truncus coeliacus thrombosis [None]
  - Iliac artery occlusion [None]
  - Pulmonary embolism [None]
